FAERS Safety Report 10053231 (Version 2)
Quarter: 2014Q2

REPORT INFORMATION
  Report Type: Report from Study
  Country: JP (occurrence: JP)
  Receive Date: 20140402
  Receipt Date: 20140610
  Transmission Date: 20141212
  Serious: Yes (Life-Threatening)
  Sender: FDA-Public Use
  Company Number: JP-GLAXOSMITHKLINE-B0980829A

PATIENT
  Age: 87 Year
  Sex: Male
  Weight: 52 kg

DRUGS (15)
  1. REVOLADE [Suspect]
     Indication: IMMUNE THROMBOCYTOPENIC PURPURA
     Route: 048
     Dates: start: 20130805, end: 20130907
  2. CELECOX [Concomitant]
     Route: 048
     Dates: start: 20130805, end: 20130826
  3. PREDONINE [Concomitant]
     Indication: IMMUNE THROMBOCYTOPENIC PURPURA
     Route: 048
     Dates: start: 20130806, end: 20130814
  4. LENDORMIN [Concomitant]
     Route: 048
     Dates: start: 20130812, end: 20130825
  5. SAMSCA [Concomitant]
     Route: 048
     Dates: start: 20130824, end: 20130831
  6. KALIMATE [Concomitant]
     Route: 048
     Dates: start: 20130824
  7. COVERSYL [Concomitant]
     Route: 048
     Dates: end: 20130905
  8. ARTIST [Concomitant]
     Route: 048
  9. FUROSEMIDE [Concomitant]
     Route: 048
  10. VENILON [Concomitant]
     Indication: IMMUNE THROMBOCYTOPENIC PURPURA
     Route: 042
     Dates: start: 20130806, end: 20130810
  11. CHLOR-TRIMETON [Concomitant]
     Indication: IMMUNE THROMBOCYTOPENIC PURPURA
     Dates: start: 20130806, end: 20130806
  12. FUROSEMIDE [Concomitant]
     Route: 042
     Dates: start: 20130809, end: 20130830
  13. HANP [Concomitant]
     Dates: start: 20130823, end: 20130824
  14. INOVAN [Concomitant]
     Indication: CARDIAC FAILURE
     Dates: start: 20130824, end: 20130826
  15. PRECEDEX [Concomitant]
     Indication: ANAESTHESIA PROCEDURE
     Route: 042
     Dates: start: 20130824, end: 20130828

REACTIONS (2)
  - Pneumonia aspiration [Recovered/Resolved]
  - Acute coronary syndrome [Recovered/Resolved]
